FAERS Safety Report 19725796 (Version 2)
Quarter: 2021Q3

REPORT INFORMATION
  Report Type: Report from Study
  Country: None (occurrence: DE)
  Receive Date: 20210820
  Receipt Date: 20210906
  Transmission Date: 20211014
  Serious: Yes (Other)
  Sender: FDA-Public Use
  Company Number: DE-ABBVIE-21K-062-4046597-00

PATIENT
  Age: 62 Year
  Sex: Male

DRUGS (22)
  1. SKYRIZI [Suspect]
     Active Substance: RISANKIZUMAB-RZAA
     Route: 058
     Dates: start: 20210713
  2. NEBIVOL [Concomitant]
     Indication: HYPERTENSION
     Route: 048
     Dates: start: 20110101
  3. SKYRIZI [Suspect]
     Active Substance: RISANKIZUMAB-RZAA
     Indication: PSORIASIS
     Route: 058
     Dates: start: 20191024, end: 20200506
  4. JODID [Concomitant]
     Active Substance: IODINE
     Indication: HYPOTHYROIDISM
     Route: 048
     Dates: start: 20160601
  5. ENSTILAR [Concomitant]
     Active Substance: BETAMETHASONE DIPROPIONATE\CALCIPOTRIENE HYDRATE
     Indication: PSORIASIS
     Dosage: 1 APPLICATION, FOAM
     Route: 061
     Dates: start: 20201101
  6. LOTRICOMB [Concomitant]
     Active Substance: BETAMETHASONE DIPROPIONATE\CLOTRIMAZOLE
     Indication: PSORIASIS
     Route: 061
     Dates: start: 20190801
  7. BEPANTHEN SCAR TREATMENT [Concomitant]
     Indication: SCAR
     Route: 061
     Dates: start: 20200724
  8. CANDESARTAN. [Concomitant]
     Active Substance: CANDESARTAN
     Indication: HYPERTENSION
     Route: 048
     Dates: start: 20190701
  9. LERCANIDIPIN ACTAVIS [Concomitant]
     Active Substance: LERCANIDIPINE
     Indication: HYPERTENSION
     Route: 048
     Dates: start: 20210601, end: 20210622
  10. SPIRONOLACTON [Concomitant]
     Active Substance: SPIRONOLACTONE
     Indication: HYPERTENSION
     Route: 048
     Dates: start: 20210707
  11. FOLIC ACID. [Concomitant]
     Active Substance: FOLIC ACID
     Indication: POLYNEUROPATHY
     Route: 048
     Dates: start: 20170901
  12. ENSTILAR [Concomitant]
     Active Substance: BETAMETHASONE DIPROPIONATE\CALCIPOTRIENE HYDRATE
     Indication: PSORIASIS
     Dosage: 50 G/G, FOAM
     Route: 061
     Dates: start: 20190501
  13. LUXERM [Concomitant]
     Indication: ACTINIC KERATOSIS
     Route: 061
     Dates: start: 20200416, end: 20200416
  14. LUXERM [Concomitant]
     Dosage: 160 MG/G
     Route: 061
     Dates: start: 20200808, end: 20200808
  15. TORASEMID [Concomitant]
     Active Substance: TORSEMIDE
     Indication: HYPERTENSION
     Route: 048
     Dates: start: 20190701
  16. ALLOPURINOL. [Concomitant]
     Active Substance: ALLOPURINOL
     Indication: HYPERURICAEMIA
     Route: 048
     Dates: start: 20090101
  17. VITAMIN B12 [Concomitant]
     Active Substance: CYANOCOBALAMIN
     Indication: POLYNEUROPATHY
     Route: 058
     Dates: start: 20170901
  18. BEPANTHEN [Concomitant]
     Indication: RHINITIS
     Dosage: NOSESALVE, 1 APPLICATION  MAX. TWICE DAILY
     Route: 061
     Dates: start: 20200213
  19. AMLODIPINE [Concomitant]
     Active Substance: AMLODIPINE BESYLATE
     Indication: HYPERTENSION
     Route: 048
     Dates: start: 20160101, end: 20200510
  20. LERCANIDIPIN ACTAVIS [Concomitant]
     Active Substance: LERCANIDIPINE
     Indication: HYPERTENSION
     Route: 048
     Dates: start: 20210622
  21. AMLODIPINE [Concomitant]
     Active Substance: AMLODIPINE BESYLATE
     Indication: HYPERTENSION
     Route: 048
     Dates: start: 20200511, end: 20200531
  22. ELIQUIS [Concomitant]
     Active Substance: APIXABAN
     Indication: ATRIAL FIBRILLATION
     Route: 048
     Dates: start: 20161201

REACTIONS (1)
  - Squamous cell carcinoma [Not Recovered/Not Resolved]

NARRATIVE: CASE EVENT DATE: 20210812
